FAERS Safety Report 8488879-8 (Version None)
Quarter: 2012Q3

REPORT INFORMATION
  Report Type: 
  Country: None (occurrence: None)
  Receive Date: 20120705
  Receipt Date: 20120622
  Transmission Date: 20120928
  Serious: Yes (Life-Threatening, Other)
  Sender: FDA-Public Use
  Company Number: JP-ROCHE-1014070

PATIENT
  Sex: Male
  Weight: 60 kg

DRUGS (28)
  1. AVASTIN [Suspect]
     Route: 041
     Dates: start: 20110630, end: 20111101
  2. KYTRIL [Suspect]
     Indication: PROPHYLAXIS
     Route: 042
     Dates: start: 20100803, end: 20110519
  3. IRINOTECAN HCL [Concomitant]
     Route: 041
     Dates: start: 20110920, end: 20111101
  4. OXALIPLATIN [Concomitant]
     Indication: COLORECTAL CANCER METASTATIC
     Route: 041
     Dates: start: 20100803, end: 20110104
  5. TRAMADOL HYDROCHLORIDE [Concomitant]
     Route: 048
     Dates: start: 20111025, end: 20111114
  6. PROCHLORPERAZINE [Concomitant]
     Route: 048
     Dates: start: 20110823, end: 20110920
  7. VIAGRA [Concomitant]
     Indication: ERECTILE DYSFUNCTION
     Dosage: IRREGULARITY
     Route: 048
     Dates: start: 20110111
  8. FLUOROURACIL [Concomitant]
     Indication: COLORECTAL CANCER METASTATIC
     Route: 041
     Dates: start: 20110726, end: 20110728
  9. PYDOXAL [Concomitant]
     Indication: PROPHYLAXIS
     Route: 048
     Dates: start: 20100803, end: 20110128
  10. MUCOSTA [Concomitant]
     Indication: CANCER PAIN
     Route: 048
     Dates: start: 20110609, end: 20111102
  11. XELODA [Suspect]
     Dosage: IT IS ONE ADMINISTERING WEEKLY HOLIDAY MEDICINE FOR TWO WEEKS.
     Route: 048
     Dates: start: 20100914, end: 20101025
  12. TRAMADOL HYDROCHLORIDE [Concomitant]
     Indication: CANCER PAIN
     Route: 048
     Dates: start: 20110816, end: 20110822
  13. XELODA [Suspect]
     Dosage: IT IS ONE ADMINISTERING WEEKLY HOLIDAY MEDICINE FOR TWO WEEKS.
     Route: 048
     Dates: start: 20101026, end: 20110118
  14. FLUOROURACIL [Concomitant]
     Route: 041
     Dates: start: 20110823, end: 20110921
  15. IRINOTECAN HCL [Concomitant]
     Indication: COLORECTAL CANCER METASTATIC
     Route: 041
     Dates: start: 20110726, end: 20110906
  16. FLUOROURACIL [Concomitant]
     Route: 041
     Dates: start: 20111018, end: 20111101
  17. LOXONIN [Concomitant]
     Indication: CANCER PAIN
     Route: 048
     Dates: start: 20110609, end: 20111102
  18. AVASTIN [Suspect]
     Indication: COLORECTAL CANCER METASTATIC
     Route: 041
     Dates: start: 20100803, end: 20110519
  19. XELODA [Suspect]
     Indication: COLORECTAL CANCER METASTATIC
     Dosage: IT IS ONE ADMINISTERING WEEKLY HOLIDAY MEDICINE FOR TWO WEEKS.
     Route: 048
     Dates: start: 20100803, end: 20100913
  20. XELODA [Suspect]
     Dosage: IT IS ONE ADMINISTERING WEEKLY HOLIDAY MEDICINE FOR TWO WEEKS.
     Route: 048
     Dates: start: 20110217, end: 20110519
  21. MOTILIUM [Suspect]
     Indication: PROPHYLAXIS
     Route: 048
     Dates: start: 20100803, end: 20101110
  22. OXALIPLATIN [Concomitant]
     Route: 041
     Dates: start: 20110217, end: 20110519
  23. LEVOLEUCOVORIN CALCIUM [Concomitant]
     Indication: COLORECTAL CANCER METASTATIC
     Route: 041
     Dates: start: 20110726, end: 20111101
  24. DECADRON [Concomitant]
     Indication: PROPHYLAXIS
     Route: 042
     Dates: start: 20100803, end: 20111101
  25. MOTILIUM [Suspect]
     Indication: PROPHYLAXIS OF NAUSEA AND VOMITING
     Route: 048
     Dates: start: 20111025, end: 20111114
  26. ALOXI [Concomitant]
     Indication: PROPHYLAXIS
     Route: 042
     Dates: start: 20110726, end: 20111101
  27. TRAMADOL HYDROCHLORIDE [Concomitant]
     Route: 048
     Dates: start: 20110823, end: 20110920
  28. PROCHLORPERAZINE [Concomitant]
     Indication: PROPHYLAXIS OF NAUSEA AND VOMITING
     Route: 048
     Dates: start: 20110816, end: 20110822

REACTIONS (8)
  - CATHETER SITE PAIN [None]
  - PLATELET COUNT DECREASED [None]
  - CONSTIPATION [None]
  - DYSCHEZIA [None]
  - INSOMNIA [None]
  - DEVICE RELATED INFECTION [None]
  - GASTRIC VARICES HAEMORRHAGE [None]
  - PORTAL VEIN PRESSURE INCREASED [None]
